FAERS Safety Report 10463502 (Version 1)
Quarter: 2014Q3

REPORT INFORMATION
  Report Type: Spontaneous
  Country: US (occurrence: None)
  Receive Date: 20140918
  Receipt Date: 20140918
  Transmission Date: 20150326
  Serious: Yes (Hospitalization)
  Sender: FDA-Public Use
  Company Number: None

PATIENT
  Age: 71 Year
  Sex: Female
  Weight: 77.9 kg

DRUGS (5)
  1. LEUCOVORIN CALCIUM. [Suspect]
     Active Substance: LEUCOVORIN CALCIUM
  2. XELODA [Suspect]
     Active Substance: CAPECITABINE
  3. 5-FLUOROURACIL [Suspect]
     Active Substance: FLUOROURACIL
  4. CAMPTOSAR [Suspect]
     Active Substance: IRINOTECAN HYDROCHLORIDE
  5. OXALIPLATIN. [Suspect]
     Active Substance: OXALIPLATIN

REACTIONS (6)
  - Clostridium difficile infection [None]
  - Vomiting [None]
  - Nausea [None]
  - Impaired gastric emptying [None]
  - Gastritis [None]
  - Obstruction gastric [None]

NARRATIVE: CASE EVENT DATE: 20140903
